FAERS Safety Report 7745204-5 (Version None)
Quarter: 2011Q3

REPORT INFORMATION
  Report Type: 
  Country: None (occurrence: None)
  Receive Date: 20110907
  Receipt Date: 20110825
  Transmission Date: 20111222
  Serious: Yes (Death, Other)
  Sender: FDA-Public Use
  Company Number: EU-2011-10159

PATIENT
  Age: 60 Year
  Sex: Male

DRUGS (1)
  1. SAMSCA [Suspect]
     Indication: INAPPROPRIATE ANTIDIURETIC HORMONE SECRETION
     Dosage: 15 MG MILLIGRAM(S), TIW, ORAL
     Route: 048
     Dates: start: 20110208

REACTIONS (3)
  - MALAISE [None]
  - OXYGEN SATURATION DECREASED [None]
  - LIVER FUNCTION TEST ABNORMAL [None]
